FAERS Safety Report 23324611 (Version 3)
Quarter: 2025Q2

REPORT INFORMATION
  Report Type: Report from Study
  Country: CA (occurrence: CA)
  Receive Date: 20231221
  Receipt Date: 20250506
  Transmission Date: 20250717
  Serious: No
  Sender: TAKEDA
  Company Number: CA-TAKEDA-2023TUS121433

PATIENT
  Age: 54 Year
  Sex: Female

DRUGS (2)
  1. VEDOLIZUMAB [Suspect]
     Active Substance: VEDOLIZUMAB
     Indication: Crohn^s disease
     Dates: start: 20230817, end: 20231122
  2. VEDOLIZUMAB [Suspect]
     Active Substance: VEDOLIZUMAB

REACTIONS (2)
  - Drug ineffective [Unknown]
  - Dyspepsia [Recovered/Resolved]

NARRATIVE: CASE EVENT DATE: 20250430
